FAERS Safety Report 4908739-6 (Version None)
Quarter: 2006Q1

REPORT INFORMATION
  Report Type: 
  Country: None (occurrence: None)
  Receive Date: 20060210
  Receipt Date: 20051104
  Transmission Date: 20060701
  Serious: No
  Sender: FDA-Public Use
  Company Number: US-GLAXOSMITHKLINE-A0580895A

PATIENT
  Age: 50 Year
  Sex: Female

DRUGS (2)
  1. PAXIL CR [Suspect]
     Dosage: 37.5MG PER DAY
     Route: 048
     Dates: start: 20051103
  2. PAXIL [Concomitant]
     Route: 048
     Dates: start: 19970101, end: 20051103

REACTIONS (1)
  - INSOMNIA [None]
